FAERS Safety Report 18163381 (Version 2)
Quarter: 2020Q3

REPORT INFORMATION
  Report Type: Spontaneous
  Country: JP (occurrence: JP)
  Receive Date: 20200818
  Receipt Date: 20200909
  Transmission Date: 20201103
  Serious: No
  Sender: FDA-Public Use
  Company Number: JP-ASTRAZENECA-2020SF02955

PATIENT
  Age: 63 Year
  Sex: Female

DRUGS (8)
  1. LYNPARZA [Suspect]
     Active Substance: OLAPARIB
     Indication: OVARIAN CANCER
     Route: 048
     Dates: start: 20190926, end: 20191112
  2. CARBOPLATIN. [Concomitant]
     Active Substance: CARBOPLATIN
     Indication: OVARIAN CANCER
     Dosage: DOSE AND FREQUENCY UNKNOWN
     Route: 065
  3. LYNPARZA [Suspect]
     Active Substance: OLAPARIB
     Indication: OVARIAN CANCER
     Dosage: 200 MG
     Route: 048
     Dates: start: 20190716, end: 20190910
  4. LYNPARZA [Suspect]
     Active Substance: OLAPARIB
     Indication: OVARIAN CANCER
     Route: 048
     Dates: start: 20191210, end: 20200121
  5. LYNPARZA [Suspect]
     Active Substance: OLAPARIB
     Indication: OVARIAN CANCER
     Dosage: 300 MG
     Route: 048
     Dates: start: 20180904, end: 20181105
  6. LYNPARZA [Suspect]
     Active Substance: OLAPARIB
     Indication: OVARIAN CANCER
     Dosage: DOSE AND FREQUENCY UNKNOWN
     Route: 048
     Dates: start: 20181213, end: 20190124
  7. PACLITAXEL. [Concomitant]
     Active Substance: PACLITAXEL
     Indication: OVARIAN CANCER
     Dosage: DOSE AND FREQUENCY UNKNOWN
     Route: 065
  8. LYNPARZA [Suspect]
     Active Substance: OLAPARIB
     Indication: OVARIAN CANCER
     Dosage: 250 MG
     Route: 048
     Dates: start: 20190212, end: 20190618

REACTIONS (1)
  - Anaemia [Recovered/Resolved]

NARRATIVE: CASE EVENT DATE: 20181105
